FAERS Safety Report 12476693 (Version 3)
Quarter: 2016Q3

REPORT INFORMATION
  Report Type: Spontaneous
  Country: JP (occurrence: JP)
  Receive Date: 20160617
  Receipt Date: 20160907
  Transmission Date: 20161109
  Serious: No
  Sender: FDA-Public Use
  Company Number: JP-PFIZER INC-2016300668

PATIENT
  Age: 76 Year
  Sex: Female

DRUGS (3)
  1. TENORMIN [Suspect]
     Active Substance: ATENOLOL
     Dosage: UNK
     Route: 048
  2. TENORMIN [Suspect]
     Active Substance: ATENOLOL
     Indication: HYPERTENSION
     Dosage: 25 MG, 2X/DAY
     Route: 048
     Dates: start: 2013
  3. TENORMIN [Suspect]
     Active Substance: ATENOLOL
     Dosage: 5 MG, 2X/DAY
     Route: 048

REACTIONS (6)
  - Fall [Unknown]
  - Limb discomfort [Unknown]
  - Drug dose omission [Unknown]
  - Peripheral nerve palsy [Not Recovered/Not Resolved]
  - Chest discomfort [Unknown]
  - Prescribed underdose [Unknown]
